FAERS Safety Report 7105682-1 (Version None)
Quarter: 2010Q4

REPORT INFORMATION
  Report Type: 
  Country: None (occurrence: None)
  Receive Date: 20101110
  Receipt Date: 20101101
  Transmission Date: 20110411
  Serious: Yes (Other)
  Sender: FDA-Public Use
  Company Number: 745202

PATIENT
  Age: 22 Year
  Sex: Female

DRUGS (1)
  1. ATROPINE SULFATE [Suspect]
     Indication: ATRIOVENTRICULAR BLOCK SECOND DEGREE
     Dosage: .5 MG MILLIGRAM(S), INTRAVENOUS
     Route: 042

REACTIONS (6)
  - BLOOD CREATINE PHOSPHOKINASE INCREASED [None]
  - HYPOTENSION [None]
  - LEFT VENTRICULAR DYSFUNCTION [None]
  - PULMONARY OEDEMA [None]
  - TROPONIN INCREASED [None]
  - VENTRICULAR TACHYCARDIA [None]
